FAERS Safety Report 12199978 (Version 1)
Quarter: 2016Q1

REPORT INFORMATION
  Report Type: Report from Study
  Country: VN (occurrence: VN)
  Receive Date: 20160322
  Receipt Date: 20160322
  Transmission Date: 20160526
  Serious: Yes (Hospitalization)
  Sender: FDA-Public Use
  Company Number: VN-ASTRAZENECA-2016SE28967

PATIENT
  Age: 66 Year
  Sex: Female

DRUGS (13)
  1. BRILINTA [Suspect]
     Active Substance: TICAGRELOR
     Indication: CORONARY ARTERY DISEASE
     Route: 048
  2. SPIROMIDE [Concomitant]
     Dosage: 20/50MG 1/4 TABLET PER DAY
  3. GINKOKUP [Concomitant]
  4. EXFORGE [Concomitant]
     Active Substance: AMLODIPINE BESYLATE\VALSARTAN
     Dosage: 5/80MG 1 TABLET PER DAY
  5. BISOPROLOL FUMARATE. [Concomitant]
     Active Substance: BISOPROLOL FUMARATE
     Dosage: 5MG 1/4 TABLET PER DAY
  6. DEPAKINE [Concomitant]
     Active Substance: VALPROATE SODIUM
  7. LIPITOR [Concomitant]
     Active Substance: ATORVASTATIN CALCIUM
     Dosage: 20MG 1 TABLET PER DAY
  8. FUROSEMIDE. [Concomitant]
     Active Substance: FUROSEMIDE
     Dosage: 40MG 1/2 TABLET PER DAY
  9. AMLOR [Concomitant]
     Active Substance: AMLODIPINE BESYLATE
     Dosage: 5MG 1 TABLET PER DAY
  10. ASPILETS [Concomitant]
     Active Substance: ASPIRIN
     Dosage: 80MG 1 TABLET PER DAY
  11. RABEPRAZOLE [Concomitant]
     Active Substance: RABEPRAZOLE
     Dosage: 20, 1 TABLET PER DAY
  12. EPREX [Concomitant]
     Active Substance: ERYTHROPOIETIN
     Dosage: 2000UI/0.5ML ONCE PER WEEK
  13. IMDUR [Concomitant]
     Active Substance: ISOSORBIDE MONONITRATE
     Dosage: 30MG ONE TABLET PER DAY

REACTIONS (3)
  - Blood creatinine increased [Unknown]
  - Small intestinal ulcer haemorrhage [Recovered/Resolved]
  - Urinary tract infection [Unknown]
